FAERS Safety Report 12654137 (Version 7)
Quarter: 2017Q1

REPORT INFORMATION
  Report Type: Report from Study
  Country: JP (occurrence: JP)
  Receive Date: 20160816
  Receipt Date: 20170126
  Transmission Date: 20170428
  Serious: Yes (Death, Life-Threatening, Disabling)
  Sender: FDA-Public Use
  Company Number: JP-ASTRAZENECA-2016SE87423

PATIENT
  Age: 77 Year
  Sex: Female
  Weight: 42 kg

DRUGS (13)
  1. METHYLPREDNISOLONE. [Suspect]
     Active Substance: METHYLPREDNISOLONE
     Indication: LUNG DISORDER
     Dosage: NUMBER OF SEPARATE DOSAGES UNKNOWN62.5MG UNKNOWN
     Route: 065
     Dates: start: 20160804, end: 20160807
  2. PREDONINE [Suspect]
     Active Substance: PREDNISOLONE
     Indication: MALAISE
     Dosage: NUMBER OF SEPARATE DOSAGES UNKNOWN
     Route: 048
     Dates: start: 20160811, end: 20160814
  3. METHYLPREDNISOLONE. [Suspect]
     Active Substance: METHYLPREDNISOLONE
     Indication: LUNG DISORDER
     Dosage: NUMBER OF SEPARATE DOSAGES UNKNOWN500.0MG UNKNOWN
     Route: 065
     Dates: start: 20160815, end: 20160817
  4. METHYLPREDNISOLONE. [Suspect]
     Active Substance: METHYLPREDNISOLONE
     Indication: LUNG DISORDER
     Dosage: NUMBER OF SEPARATE DOSAGES UNKNOWN1000.0MG UNKNOWN
     Route: 065
     Dates: start: 20160801, end: 20160803
  5. DAIPHEN [Concomitant]
     Active Substance: SULFAMETHOXAZOLE\TRIMETHOPRIM
     Indication: PROPHYLAXIS
     Dosage: NUMBER OF SEPARATE DOSAGES UNKNOWN1.0DF UNKNOWN
     Route: 048
     Dates: end: 20160731
  6. TAGRISSO [Suspect]
     Active Substance: OSIMERTINIB
     Indication: NON-SMALL CELL LUNG CANCER
     Route: 048
     Dates: start: 20160704, end: 20160727
  7. MOSAPRIDE CITRATE HYDRATE [Concomitant]
     Active Substance: MOSAPRIDE CITRATE DIHYDRATE
     Indication: NAUSEA
     Dosage: NUMBER OF SEPARATE DOSAGES UNKNOWN15.0MG UNKNOWN
     Route: 048
     Dates: end: 20160731
  8. MAGMITT [Concomitant]
     Active Substance: MAGNESIUM OXIDE
     Indication: CONSTIPATION
     Dosage: NUMBER OF SEPARATE DOSAGES UNKNOWN1500.0MG UNKNOWN
     Route: 048
     Dates: end: 20160731
  9. METHYLPREDNISOLONE. [Suspect]
     Active Substance: METHYLPREDNISOLONE
     Indication: LUNG DISORDER
     Dosage: NUMBER OF SEPARATE DOSAGES UNKNOWN1000.0MG UNKNOWN
     Route: 065
     Dates: start: 20160808, end: 20160810
  10. OPDIVO [Suspect]
     Active Substance: NIVOLUMAB
     Indication: NON-SMALL CELL LUNG CANCER
     Dosage: DOSE UNKNOWN
     Route: 065
     Dates: start: 20160412, end: 20160607
  11. PREDONINE [Suspect]
     Active Substance: PREDNISOLONE
     Indication: MALAISE
     Dosage: NUMBER OF SEPARATE DOSAGES UNKNOWN
     Route: 048
     Dates: end: 20160731
  12. PREDONINE [Suspect]
     Active Substance: PREDNISOLONE
     Indication: MALAISE
     Dosage: NUMBER OF SEPARATE DOSAGES UNKNOWN
     Route: 048
     Dates: start: 20160818, end: 20160826
  13. STOMARCON [Concomitant]
     Active Substance: FAMOTIDINE
     Indication: PROPHYLAXIS
     Dosage: NUMBER OF SEPARATE DOSAGES UNKNOWN20.0MG UNKNOWN
     Route: 048
     Dates: end: 20160731

REACTIONS (3)
  - Malignant neoplasm progression [Fatal]
  - Lung disorder [Recovering/Resolving]
  - Liver disorder [Not Recovered/Not Resolved]

NARRATIVE: CASE EVENT DATE: 20160729
